FAERS Safety Report 8571213-2 (Version None)
Quarter: 2012Q3

REPORT INFORMATION
  Report Type: 
  Country: None (occurrence: None)
  Receive Date: 20120730
  Receipt Date: 20120730
  Transmission Date: 20120928
  Serious: Yes (Hospitalization)
  Sender: FDA-Public Use
  Company Number: None

PATIENT
  Sex: Female
  Weight: 75 kg

DRUGS (1)
  1. INTRON A [Suspect]
     Dosage: 499MU
     Dates: start: 20111111

REACTIONS (6)
  - NEUTROPENIA [None]
  - MEMORY IMPAIRMENT [None]
  - NAUSEA [None]
  - ABNORMAL BEHAVIOUR [None]
  - FATIGUE [None]
  - COGNITIVE DISORDER [None]
